FAERS Safety Report 7911266-5 (Version None)
Quarter: 2011Q4

REPORT INFORMATION
  Report Type: 
  Country: None (occurrence: None)
  Receive Date: 20111114
  Receipt Date: 20111108
  Transmission Date: 20120403
  Serious: Yes (Other)
  Sender: FDA-Public Use
  Company Number: DE-SHIRE-SPV1-2011-01395

PATIENT
  Sex: Female
  Weight: 65 kg

DRUGS (2)
  1. METHYLPHENIDATE [Suspect]
     Indication: SUICIDE ATTEMPT
     Dosage: 800 MG, ONE DOSE
     Route: 048
     Dates: start: 20111023
  2. DIPHENHYDRAMINE HYDROCHLORIDE [Suspect]
     Indication: SUICIDE ATTEMPT
     Dosage: 350 MG, ONE DOSE
     Route: 048

REACTIONS (4)
  - SUICIDE ATTEMPT [None]
  - DIASTOLIC HYPERTENSION [None]
  - INTENTIONAL OVERDOSE [None]
  - TACHYCARDIA [None]
